FAERS Safety Report 7204449-3 (Version None)
Quarter: 2010Q4

REPORT INFORMATION
  Report Type: 
  Country: None (occurrence: None)
  Receive Date: 20101220
  Receipt Date: 20101210
  Transmission Date: 20110411
  Serious: Yes (Hospitalization, Other)
  Sender: FDA-Public Use
  Company Number: 110286

PATIENT
  Age: 62 Year
  Sex: Male

DRUGS (1)
  1. DILTIAZEM HCL [Suspect]
     Dosage: 2.5G

REACTIONS (11)
  - ACIDOSIS [None]
  - BLOOD GLUCOSE ABNORMAL [None]
  - DIALYSIS [None]
  - GAIT DISTURBANCE [None]
  - HYPERKALAEMIA [None]
  - HYPOTENSION [None]
  - INTENTIONAL OVERDOSE [None]
  - MEDICATION ERROR [None]
  - RENAL IMPAIRMENT [None]
  - VISION BLURRED [None]
  - VOMITING [None]
